FAERS Safety Report 4734452-4 (Version None)
Quarter: 2005Q3

REPORT INFORMATION
  Report Type: 
  Country: None (occurrence: None)
  Receive Date: 20050804
  Receipt Date: 20050725
  Transmission Date: 20060218
  Serious: Yes (Hospitalization)
  Sender: FDA-Public Use
  Company Number: GB-ROCHE-411836

PATIENT
  Age: 25 Year
  Sex: Female

DRUGS (1)
  1. XENICAL [Suspect]
     Indication: OBESITY
     Route: 048
     Dates: start: 20050622

REACTIONS (4)
  - DIARRHOEA [None]
  - STEATORRHOEA [None]
  - SYNCOPE VASOVAGAL [None]
  - VOMITING [None]
